FAERS Safety Report 18899732 (Version 1)
Quarter: 2021Q1

REPORT INFORMATION
  Report Type: Spontaneous
  Country: US (occurrence: US)
  Receive Date: 20210216
  Receipt Date: 20210216
  Transmission Date: 20210420
  Serious: No
  Sender: FDA-Public Use
  Company Number: US-009507513-2102USA002210

PATIENT
  Sex: Female

DRUGS (1)
  1. NEXPLANON [Suspect]
     Active Substance: ETONOGESTREL
     Dosage: ROD
     Route: 059
     Dates: end: 2021

REACTIONS (5)
  - Device kink [Recovered/Resolved]
  - Patient-device incompatibility [Recovered/Resolved]
  - Device breakage [Recovered/Resolved]
  - Implant site cellulitis [Recovering/Resolving]
  - Hypersensitivity [Recovering/Resolving]
